FAERS Safety Report 8207334-3 (Version None)
Quarter: 2012Q1

REPORT INFORMATION
  Report Type: 
  Country: None (occurrence: None)
  Receive Date: 20120314
  Receipt Date: 20120105
  Transmission Date: 20120608
  Serious: No
  Sender: FDA-Public Use
  Company Number: US-GLAXOSMITHKLINE-A0960148A

PATIENT
  Age: 66 Year
  Sex: Male

DRUGS (1)
  1. NICORETTE (MINT) [Suspect]
     Indication: EX-TOBACCO USER
     Dates: start: 20120105, end: 20120105

REACTIONS (7)
  - FEAR [None]
  - PSYCHOMOTOR HYPERACTIVITY [None]
  - INSOMNIA [None]
  - THROAT IRRITATION [None]
  - NONSPECIFIC REACTION [None]
  - TREMOR [None]
  - GLOSSODYNIA [None]
